FAERS Safety Report 6104903-1 (Version None)
Quarter: 2009Q1

REPORT INFORMATION
  Report Type: 
  Country: None (occurrence: None)
  Receive Date: 20090306
  Receipt Date: 20090226
  Transmission Date: 20090719
  Serious: Yes (Other)
  Sender: FDA-Public Use
  Company Number: CA-ABBOTT-09P-028-0559759-00

PATIENT
  Sex: Female

DRUGS (3)
  1. LIPIDIL [Suspect]
     Indication: BLOOD CHOLESTEROL INCREASED
     Route: 065
     Dates: start: 20061228
  2. LIPIDIL [Suspect]
  3. LIPIDIL [Suspect]

REACTIONS (6)
  - ARTHRALGIA [None]
  - GAIT DISTURBANCE [None]
  - HEADACHE [None]
  - MYALGIA [None]
  - PAIN [None]
  - UTERINE LEIOMYOMA [None]
